FAERS Safety Report 5321107-0 (Version None)
Quarter: 2007Q2

REPORT INFORMATION
  Report Type: 
  Country: None (occurrence: None)
  Receive Date: 20070510
  Receipt Date: 20070502
  Transmission Date: 20071010
  Serious: Yes (Hospitalization)
  Sender: FDA-Public Use
  Company Number: GB-AMGEN-US167516

PATIENT
  Age: 72 Year
  Sex: Female
  Weight: 45 kg

DRUGS (15)
  1. ENBREL [Suspect]
     Indication: RHEUMATOID ARTHRITIS
     Route: 058
     Dates: start: 20050720, end: 20051222
  2. ENBREL [Suspect]
     Route: 058
     Dates: start: 20060120
  3. SIMVASTATIN [Concomitant]
     Indication: CEREBROVASCULAR ACCIDENT
     Route: 048
     Dates: start: 20051228
  4. DIDRONEL PMO [Concomitant]
     Indication: OSTEOPOROSIS
     Route: 048
     Dates: start: 20040531
  5. PREDNISOLONE [Concomitant]
     Indication: RHEUMATOID ARTHRITIS
     Route: 048
     Dates: start: 20030228
  6. PARACETAMOL [Concomitant]
     Indication: PAIN
     Dosage: 1G 4-6 HOURLY, AS REQUIRED
     Route: 048
  7. ISONIAZID [Concomitant]
     Indication: TUBERCULOSIS
     Route: 048
     Dates: start: 20050310, end: 20050427
  8. OMEPRAZOLE [Concomitant]
     Indication: PROPHYLAXIS AGAINST GASTROINTESTINAL ULCER
     Route: 048
  9. BETNESOL [Concomitant]
     Indication: CORNEAL DYSTROPHY
     Dosage: 1 DROP ONCE DAILY ON ALTERNATE DAYS TO EACH EYE
     Route: 061
  10. BETNESOL [Concomitant]
     Indication: UVEITIS
  11. CANDESARTAN [Concomitant]
     Indication: HYPERTENSION
     Route: 048
     Dates: start: 20020730, end: 20051221
  12. RIFAMPICIN [Concomitant]
     Indication: TUBERCULOSIS
     Dosage: 450MG DAILY
     Route: 048
     Dates: start: 20050613, end: 20051005
  13. ETHAMBUTOL HYDROCHLORIDE [Concomitant]
     Indication: TUBERCULOSIS
     Route: 048
     Dates: start: 20050613, end: 20051005
  14. ASPIRIN [Concomitant]
     Indication: CEREBROVASCULAR ACCIDENT
     Route: 048
     Dates: start: 20051226
  15. IBUPROFEN [Concomitant]
     Indication: PAIN
     Dosage: 400MG, THREE TIMES DAILY AS REQUIRED
     Route: 048

REACTIONS (3)
  - DYSARTHRIA [None]
  - HEMIPARESIS [None]
  - PARAESTHESIA [None]
